FAERS Safety Report 16627247 (Version 1)
Quarter: 2019Q3

REPORT INFORMATION
  Report Type: Spontaneous
  Country: US (occurrence: US)
  Receive Date: 20190724
  Receipt Date: 20190724
  Transmission Date: 20191004
  Serious: No
  Sender: FDA-Public Use
  Company Number: US-ANTARES PHARMA, INC.-2019-SPO-OT-0036

PATIENT

DRUGS (1)
  1. XYOSTED [Suspect]
     Active Substance: TESTOSTERONE ENANTHATE
     Indication: BLOOD TESTOSTERONE DECREASED
     Dosage: 75 MG, UNK
     Dates: start: 201905

REACTIONS (3)
  - Drug ineffective [Unknown]
  - Mood altered [Unknown]
  - Loss of libido [Unknown]

NARRATIVE: CASE EVENT DATE: 20190519
